FAERS Safety Report 14610933 (Version 1)
Quarter: 2018Q1

REPORT INFORMATION
  Report Type: Spontaneous
  Country: FR (occurrence: FR)
  Receive Date: 20180308
  Receipt Date: 20180308
  Transmission Date: 20180509
  Serious: Yes (Other)
  Sender: FDA-Public Use
  Company Number: FR-CONCORDIA PHARMACEUTICALS INC.-GSH201803-000912

PATIENT
  Age: 92 Year
  Sex: Female

DRUGS (18)
  1. COTAREG [Concomitant]
     Active Substance: HYDROCHLOROTHIAZIDE\VALSARTAN
  2. KARDEGIC [Concomitant]
     Active Substance: ASPIRIN DL-LYSINE
  3. AMOXICILLIN/CLAVULANIC ACID [Suspect]
     Active Substance: AMOXICILLIN\CLAVULANIC ACID
     Indication: BRONCHITIS
     Route: 040
     Dates: start: 20180122, end: 20180129
  4. LASILIX [Concomitant]
     Active Substance: FUROSEMIDE
  5. STEROGYL [Concomitant]
     Active Substance: ERGOCALCIFEROL
  6. CLOTIAZEPAM [Concomitant]
     Active Substance: CLOTIAZEPAM
  7. SALBUTAMOL [Concomitant]
     Active Substance: ALBUTEROL
  8. PREVISCAN (FLUINDIONE) [Suspect]
     Active Substance: FLUINDIONE
     Indication: ATRIAL FIBRILLATION
     Route: 048
  9. LERCANIDIPINE [Concomitant]
     Active Substance: LERCANIDIPINE
  10. ALFUZOSIN [Suspect]
     Active Substance: ALFUZOSIN
     Indication: BLADDER CATHETER REMOVAL
     Route: 048
     Dates: start: 20180125, end: 20180129
  11. PROZAC [Concomitant]
     Active Substance: FLUOXETINE HYDROCHLORIDE
  12. LIBRAX [Concomitant]
     Active Substance: CHLORDIAZEPOXIDE HYDROCHLORIDE\CLIDINIUM BROMIDE
  13. DAFLON (DIOSMIN/HESPERIDIN) [Concomitant]
     Active Substance: DIOSMIN\HESPERIDIN
  14. FORMOTEROL [Concomitant]
     Active Substance: FORMOTEROL
  15. BUDESONIDE. [Concomitant]
     Active Substance: BUDESONIDE
  16. OMEPRAZOLE. [Concomitant]
     Active Substance: OMEPRAZOLE
  17. LEVOTHYROX [Concomitant]
     Active Substance: LEVOTHYROXINE
  18. PARACETAMOL [Concomitant]
     Active Substance: ACETAMINOPHEN

REACTIONS (1)
  - Acute generalised exanthematous pustulosis [Recovering/Resolving]

NARRATIVE: CASE EVENT DATE: 20180206
